FAERS Safety Report 18214962 (Version 3)
Quarter: 2020Q3

REPORT INFORMATION
  Report Type: Spontaneous
  Country: US (occurrence: US)
  Receive Date: 20200831
  Receipt Date: 20200903
  Transmission Date: 20201103
  Serious: Yes (Hospitalization)
  Sender: FDA-Public Use
  Company Number: US-CELGENEUS-USA-20200805340

PATIENT
  Age: 50 Year
  Sex: Female

DRUGS (27)
  1. SYNTHROID [Concomitant]
     Active Substance: LEVOTHYROXINE SODIUM
     Indication: HYPOTHYROIDISM
     Dosage: 75 MICROGRAM
     Route: 048
  2. ATIVAN [Concomitant]
     Active Substance: LORAZEPAM
     Indication: VOMITING
  3. MAGNESIUM OXIDE. [Concomitant]
     Active Substance: MAGNESIUM OXIDE
     Indication: PRODUCT USED FOR UNKNOWN INDICATION
     Dosage: 400 MILLIGRAM
     Route: 048
  4. DIPHENHYDRAMINE (BENADRYL) [Concomitant]
     Indication: PRODUCT USED FOR UNKNOWN INDICATION
     Dosage: 25?50 MILLIGRAM
     Route: 048
  5. PANTOPRAZOLE DR (PROTONIX) [Concomitant]
     Indication: PRODUCT USED FOR UNKNOWN INDICATION
     Dosage: 40 MILLIGRAM
     Route: 048
  6. ROMIDEPSIN (TEVA) [Suspect]
     Active Substance: ROMIDEPSIN
     Indication: BREAST CANCER METASTATIC
     Dosage: 8 MILLIGRAM/SQ. METER
     Route: 041
     Dates: start: 20180308, end: 20200701
  7. NIVOLUMAB [Suspect]
     Active Substance: NIVOLUMAB
     Indication: BREAST CANCER METASTATIC
     Dosage: 360 MILLIGRAM
     Route: 041
     Dates: start: 20180308, end: 20200624
  8. CISPLATIN. [Suspect]
     Active Substance: CISPLATIN
     Indication: BREAST CANCER METASTATIC
     Route: 065
     Dates: start: 2019, end: 202006
  9. CHOLECALCIFEROL (VITAMIN D?3) [Concomitant]
     Indication: PRODUCT USED FOR UNKNOWN INDICATION
     Dosage: 1000 IU (INTERNATIONAL UNIT)
     Route: 048
  10. ATIVAN [Concomitant]
     Active Substance: LORAZEPAM
     Indication: NAUSEA
     Dosage: 1.5 MILLIGRAM
     Route: 048
  11. MAGNESIUM SULFATE. [Concomitant]
     Active Substance: MAGNESIUM SULFATE
     Indication: PRODUCT USED FOR UNKNOWN INDICATION
     Dosage: 1 G/D5W 100 ML IVPB
     Route: 041
  12. ROXICODONE [Concomitant]
     Active Substance: OXYCODONE HYDROCHLORIDE
     Indication: PRODUCT USED FOR UNKNOWN INDICATION
     Dosage: 5 MILLIGRAM
     Route: 048
  13. PROMETHAZINE (PHENERGAN) [Concomitant]
     Indication: NAUSEA
     Dosage: 25 MILLIGRAM
     Route: 048
  14. IPILIMUMAB [Suspect]
     Active Substance: IPILIMUMAB
     Indication: BREAST CANCER METASTATIC
     Route: 065
     Dates: start: 2019, end: 202006
  15. HYDROMORPHONE [Concomitant]
     Active Substance: HYDROMORPHONE
     Indication: PRODUCT USED FOR UNKNOWN INDICATION
     Route: 065
  16. DIPHENHYDRAMINE (BENADRYL) [Concomitant]
     Dosage: 25?50 MILLIGRAM
     Route: 048
  17. LOPERAMIDE (IMODIUM A?D) [Concomitant]
     Indication: DIARRHOEA
  18. PROMETHAZINE (PHENERGAN) [Concomitant]
     Indication: VOMITING
  19. TYLENOL [Concomitant]
     Active Substance: ACETAMINOPHEN
     Indication: ABDOMINAL PAIN
     Dosage: 4000 MILLIGRAM
     Route: 048
  20. LORAZEPAM. [Concomitant]
     Active Substance: LORAZEPAM
     Indication: PRODUCT USED FOR UNKNOWN INDICATION
     Route: 065
  21. METHYLPREDNISOLONE (MEDROL) [Concomitant]
     Indication: PRODUCT USED FOR UNKNOWN INDICATION
     Dosage: 32 MILLIGRAM
     Route: 048
  22. TOPIRAMATE (TOPOMAX) [Concomitant]
     Indication: PRODUCT USED FOR UNKNOWN INDICATION
     Dosage: 25 MILLIGRAM
     Route: 048
  23. LIDOCAINE. [Concomitant]
     Active Substance: LIDOCAINE
     Indication: PRODUCT USED FOR UNKNOWN INDICATION
     Route: 065
  24. LOPERAMIDE (IMODIUM A?D) [Concomitant]
     Indication: DIARRHOEA
     Dosage: 16 MILLIGRAM
     Route: 048
  25. OXYCODONE [Concomitant]
     Active Substance: OXYCODONE
     Indication: ABDOMINAL PAIN
     Route: 065
  26. ATIVAN [Concomitant]
     Active Substance: LORAZEPAM
     Indication: INSOMNIA
  27. METHYLPREDNISOLONE (MEDROL) [Concomitant]
     Dosage: 32 MILLIGRAM
     Route: 048

REACTIONS (1)
  - Pancreatitis [Not Recovered/Not Resolved]
